FAERS Safety Report 19156038 (Version 3)
Quarter: 2022Q1

REPORT INFORMATION
  Report Type: Spontaneous
  Country: PL (occurrence: PL)
  Receive Date: 20210419
  Receipt Date: 20220112
  Transmission Date: 20220424
  Serious: Yes (Hospitalization, Other)
  Sender: FDA-Public Use
  Company Number: PL-002147023-NVSC2021PL071658

PATIENT
  Sex: Male

DRUGS (14)
  1. PANTOPRAZOLE [Suspect]
     Active Substance: PANTOPRAZOLE
     Indication: Cardiac failure
     Dosage: 40 MG
     Route: 065
  2. ATORVASTATIN CALCIUM [Suspect]
     Active Substance: ATORVASTATIN CALCIUM
     Indication: Cardiac failure
     Dosage: 40 MG
     Route: 065
  3. BISOPROLOL [Suspect]
     Active Substance: BISOPROLOL
     Indication: Cardiac failure
     Dosage: 5 MG
     Route: 065
  4. RAMIPRIL [Suspect]
     Active Substance: RAMIPRIL
     Indication: Cardiac failure
     Dosage: 10 MG
     Route: 065
  5. METOPROLOL [Suspect]
     Active Substance: METOPROLOL
     Indication: Cardiac failure
     Dosage: 150 MG
     Route: 065
  6. AMIODARONE [Suspect]
     Active Substance: AMIODARONE
     Indication: Cardiac failure
     Dosage: UNK
     Route: 065
     Dates: start: 201808
  7. SACUBITRIL\VALSARTAN [Suspect]
     Active Substance: SACUBITRIL\VALSARTAN
     Indication: Cardiac failure
     Dosage: 48/52 MILLIGRAM
     Route: 065
     Dates: start: 201903
  8. SACUBITRIL\VALSARTAN [Suspect]
     Active Substance: SACUBITRIL\VALSARTAN
     Dosage: 98/102 MILLIGRAM
     Route: 065
     Dates: start: 201905
  9. SACUBITRIL\VALSARTAN [Suspect]
     Active Substance: SACUBITRIL\VALSARTAN
     Dosage: 194/206 MILLIGRAM
     Route: 065
     Dates: start: 201911
  10. SACUBITRIL\VALSARTAN [Suspect]
     Active Substance: SACUBITRIL\VALSARTAN
     Dosage: 98/102 MILLIGRAM
     Route: 065
     Dates: start: 202006
  11. WARFARIN [Suspect]
     Active Substance: WARFARIN
     Indication: Cardiac failure
     Dosage: UNK
     Route: 065
  12. ALLOPURINOL [Suspect]
     Active Substance: ALLOPURINOL
     Indication: Cardiac failure
     Dosage: 100 MG
     Route: 065
  13. FERROUS SULFATE [Suspect]
     Active Substance: FERROUS SULFATE
     Indication: Cardiac failure
     Dosage: UNK
     Route: 065
  14. TORSEMIDE [Suspect]
     Active Substance: TORSEMIDE
     Indication: Cardiac failure
     Dosage: 10 MG
     Route: 065

REACTIONS (15)
  - Cardiac failure [Unknown]
  - Arrhythmia [Unknown]
  - Ejection fraction decreased [Unknown]
  - Cardiac failure chronic [Unknown]
  - Cardiac dysfunction [Unknown]
  - Renal failure [Unknown]
  - Hyperthyroidism [Unknown]
  - Atrial fibrillation [Unknown]
  - Hyperkalaemia [Unknown]
  - Hypotension [Unknown]
  - Atrial flutter [Unknown]
  - Asthenia [Unknown]
  - Normocytic anaemia [Unknown]
  - Cardiac ventricular disorder [Unknown]
  - Peripheral arterial occlusive disease [Unknown]

NARRATIVE: CASE EVENT DATE: 20180101
